FAERS Safety Report 10060744 (Version 1)
Quarter: 2014Q2

REPORT INFORMATION
  Report Type: Other
  Country: IT (occurrence: IT)
  Receive Date: 20140404
  Receipt Date: 20140404
  Transmission Date: 20141212
  Serious: Yes (Other)
  Sender: FDA-Public Use
  Company Number: IT-OPTIMER-20140051

PATIENT
  Age: 77 Year
  Sex: Male
  Weight: 58 kg

DRUGS (4)
  1. DIFICLIR [Suspect]
     Indication: CLOSTRIDIUM DIFFICILE COLITIS
     Dosage: 200 MG, QD
     Route: 048
     Dates: start: 20131214, end: 20131224
  2. COUMADIN [Interacting]
     Indication: THROMBOSIS PROPHYLAXIS
     Dosage: 2.5 - 5 MG
     Route: 048
     Dates: end: 201312
  3. COUMADIN [Interacting]
     Dosage: 6.25 MG, PER DAY
     Route: 048
     Dates: start: 201312
  4. CORDARONE [Concomitant]
     Indication: ATRIAL FIBRILLATION
     Dosage: 200 MG, UNK
     Route: 048

REACTIONS (2)
  - Drug interaction [Recovered/Resolved]
  - Off label use [Recovered/Resolved]
